FAERS Safety Report 7878604-3 (Version None)
Quarter: 2011Q4

REPORT INFORMATION
  Report Type: 
  Country: None (occurrence: None)
  Receive Date: 20111014
  Receipt Date: 20100819
  Transmission Date: 20120403
  Serious: Yes (Death)
  Sender: FDA-Public Use
  Company Number: 1000014986

PATIENT
  Age: 19 Year
  Sex: Female

DRUGS (11)
  1. TRAZODONE HYDROCHLORIDE [Concomitant]
  2. LEXAPRO [Suspect]
     Indication: DEPRESSION
     Dosage: 10 MG (10 MG, 1 IN 1 D), ORAL
     Route: 048
     Dates: end: 20100602
  3. VICODIN [Suspect]
     Indication: BACK PAIN
     Dosage: ORAL
     Route: 048
  4. SEROQUEL XR [Suspect]
     Indication: BIPOLAR DISORDER
     Dosage: 100 MG (100 MG, 1 IN 1 D), ORAL
     Route: 048
  5. LEXAPRO [Suspect]
     Indication: DEPRESSION
     Dosage: 20 MG (20 MG, 1 IN 1 D), ORAL; 15 MG (15 MG, 1 IN 1 D),ORAL
     Route: 048
     Dates: start: 20100603, end: 20100605
  6. LEXAPRO [Suspect]
     Indication: DEPRESSION
     Dosage: 20 MG (20 MG, 1 IN 1 D), ORAL; 15 MG (15 MG, 1 IN 1 D),ORAL
     Route: 048
     Dates: start: 20100606
  7. ALCOHOL [Suspect]
     Dosage: ORAL
     Route: 048
  8. ULTRAM [Concomitant]
  9. IMITREX [Concomitant]
  10. SKELAXIN [Concomitant]
  11. XANAX [Suspect]
     Indication: ANXIETY
     Dosage: 0.5 MG TID PRN, ORAL
     Route: 048
     Dates: start: 20100119

REACTIONS (2)
  - ACCIDENTAL OVERDOSE [None]
  - MANIA [None]
